FAERS Safety Report 6036038-0 (Version None)
Quarter: 2009Q1

REPORT INFORMATION
  Report Type: 
  Country: None (occurrence: None)
  Receive Date: 20090113
  Receipt Date: 20090106
  Transmission Date: 20090719
  Serious: Yes (Other)
  Sender: FDA-Public Use
  Company Number: US-CELGENEUS-163-21880-08120842

PATIENT

DRUGS (5)
  1. REVLIMID [Suspect]
     Indication: MULTIPLE MYELOMA
     Route: 048
  2. MELPHALAN [Concomitant]
     Route: 065
     Dates: start: 20081101, end: 20081101
  3. MELPHALAN [Concomitant]
     Indication: AMYLOIDOSIS
  4. DEXAMETHASONE [Concomitant]
  5. DEXAMETHASONE [Concomitant]
     Indication: AMYLOIDOSIS

REACTIONS (1)
  - ANAEMIA HAEMOLYTIC AUTOIMMUNE [None]
